FAERS Safety Report 15125245 (Version 1)
Quarter: 2018Q3

REPORT INFORMATION
  Report Type: Spontaneous
  Country: US (occurrence: US)
  Receive Date: 20180710
  Receipt Date: 20180710
  Transmission Date: 20181010
  Serious: Yes (Other)
  Sender: FDA-Public Use
  Company Number: US-COVIS PHARMA B.V.-2018COV03703

PATIENT
  Sex: Male

DRUGS (8)
  1. OMEPRAZOLE MAGNESIUM. [Suspect]
     Active Substance: OMEPRAZOLE MAGNESIUM
     Dosage: UNK
  2. LUNESTA [Concomitant]
     Active Substance: ESZOPICLONE
  3. NUCYNTA [Concomitant]
     Active Substance: TAPENTADOL HYDROCHLORIDE
  4. XFORGE [Concomitant]
  5. NORCO [Concomitant]
     Active Substance: ACETAMINOPHEN\HYDROCODONE BITARTRATE
     Dosage: 320 MG, 5X/DAY
  6. TAMSULOSIN [Concomitant]
     Active Substance: TAMSULOSIN
  7. GLUCOPHAGE [Concomitant]
     Active Substance: METFORMIN HYDROCHLORIDE
  8. AMARYL [Concomitant]
     Active Substance: GLIMEPIRIDE

REACTIONS (4)
  - Constipation [Unknown]
  - Aneurysm [Unknown]
  - Subarachnoid haemorrhage [Unknown]
  - Bronchitis [Unknown]
